FAERS Safety Report 14166350 (Version 1)
Quarter: 2017Q4

REPORT INFORMATION
  Report Type: Spontaneous
  Country: US (occurrence: US)
  Receive Date: 20171106
  Receipt Date: 20171106
  Transmission Date: 20180321
  Serious: Yes (Hospitalization, Disabling)
  Sender: FDA-Public Use
  Company Number: None

PATIENT
  Sex: Female
  Weight: 51.75 kg

DRUGS (1)
  1. BOTOX [Suspect]
     Active Substance: ONABOTULINUMTOXINA
     Dosage: ?          OTHER FREQUENCY:ONCE;OTHER ROUTE:INJECTED INTO FOREHEAD?
     Dates: start: 20171009

REACTIONS (8)
  - Depression [None]
  - Hypotension [None]
  - Chest pain [None]
  - Burning sensation [None]
  - Feeling abnormal [None]
  - Anxiety [None]
  - Dyspnoea [None]
  - Asthenia [None]

NARRATIVE: CASE EVENT DATE: 20171014
